FAERS Safety Report 8697690 (Version 4)
Quarter: 2013Q1

REPORT INFORMATION
  Report Type: Spontaneous
  Country: US (occurrence: None)
  Receive Date: 20120717
  Receipt Date: 20121107
  Transmission Date: 20140127
  Serious: Yes (Hospitalization, Other)
  Sender: FDA-Public Use
  Company Number: AUR-APL-2012-02981

PATIENT
  Age: 72 Year
  Sex: Male
  Weight: 119 kg

DRUGS (26)
  1. METOPROLOL [Suspect]
     Indication: PRODUCT USED FOR UNKNOWN INDICATION
  2. CELECOXIB\IBUPROFEN\NAPROXEN\PLACEBO [Suspect]
     Indication: OSTEOARTHRITIS
     Dosage: (40 MG, 2 IN 1 D)
     Route: 048
     Dates: start: 20080716, end: 20110308
  3. NEXIUM [Concomitant]
  4. NEURONTIN [Concomitant]
  5. LISINOPRIL (LISINOPRIL) [Concomitant]
  6. METFORMIN HYDROCHLORIDE [Concomitant]
  7. LOPRESSOR [Concomitant]
  8. ZOCOR [Concomitant]
  9. TEMAZEPAM [Concomitant]
  10. TRIAMCINOLONE ACETONIDE [Concomitant]
  11. NITROGLYCERIN [Concomitant]
  12. COLCHICINE [Concomitant]
  13. PERCOCET [Concomitant]
  14. ALBUTEROL (SALBUTAMOL) [Concomitant]
  15. ALLOPURINOL [Concomitant]
  16. ABILIFY [Concomitant]
  17. ARTIFICIAL TEARS (HYPROMELLOSE) [Concomitant]
  18. VITAMIN B12 [Concomitant]
  19. COLACE (DOCUSATE SODIUM) [Concomitant]
  20. CARDURA [Concomitant]
  21. FERROUS SULFATE [Concomitant]
  22. FLUOCINOLONE ACETONIDE / KETOCAINE HYDROCHLORIDE (FLUOCINOLONE ACETONIDE) [Concomitant]
  23. LASIX (FUROSEMIDE) [Concomitant]
  24. GLUCOTROL [Concomitant]
  25. CITALOPRAM HYDROBROMIDE [Concomitant]
  26. CYANOCOBALAMIN [Concomitant]

REACTIONS (15)
  - Coronary artery disease [None]
  - Neuropathy peripheral [None]
  - Angina unstable [None]
  - Dehydration [None]
  - Gastric ulcer [None]
  - Renal failure acute [None]
  - Hypotension [None]
  - Dizziness [None]
  - Somnolence [None]
  - Blood alkaline phosphatase increased [None]
  - Blood chloride decreased [None]
  - Haemoglobin decreased [None]
  - Blood glucose increased [None]
  - White blood cell count decreased [None]
  - Red blood cell count decreased [None]
